FAERS Safety Report 5151335-9 (Version None)
Quarter: 2006Q4

REPORT INFORMATION
  Report Type: 
  Country: None (occurrence: None)
  Receive Date: 20061115
  Receipt Date: 20061102
  Transmission Date: 20070319
  Serious: Yes (Hospitalization)
  Sender: FDA-Public Use
  Company Number: PT-GLAXOSMITHKLINE-B0445847A

PATIENT
  Age: 5 Year
  Sex: Female
  Weight: 24 kg

DRUGS (2)
  1. CLAMOXYL [Suspect]
     Route: 048
     Dates: start: 20000101
  2. CEFUROXIME AXETIL [Concomitant]

REACTIONS (2)
  - RASH GENERALISED [None]
  - RASH PRURITIC [None]
